FAERS Safety Report 13440686 (Version 1)
Quarter: 2017Q2

REPORT INFORMATION
  Report Type: Spontaneous
  Country: US (occurrence: US)
  Receive Date: 20170413
  Receipt Date: 20170413
  Transmission Date: 20170830
  Serious: No
  Sender: FDA-Public Use
  Company Number: US-BRISTOL-MYERS SQUIBB COMPANY-BMS-2017-026300

PATIENT
  Age: 64 Year
  Sex: Female
  Weight: 52.15 kg

DRUGS (1)
  1. ELIQUIS [Suspect]
     Active Substance: APIXABAN
     Indication: THROMBOSIS
     Dosage: 5 MG, BID
     Route: 065
     Dates: end: 20170321

REACTIONS (8)
  - Back injury [Unknown]
  - Pruritus [Unknown]
  - Nervousness [Unknown]
  - Inflammation [Unknown]
  - Paraesthesia [Unknown]
  - Insomnia [Unknown]
  - Product use in unapproved indication [Unknown]
  - Muscle spasms [Unknown]

NARRATIVE: CASE EVENT DATE: 20170320
